FAERS Safety Report 24712523 (Version 1)
Quarter: 2024Q4

REPORT INFORMATION
  Report Type: Spontaneous
  Country: US (occurrence: None)
  Receive Date: 20241209
  Receipt Date: 20241209
  Transmission Date: 20250114
  Serious: Yes (Hospitalization)
  Sender: Public
  Company Number: None

PATIENT
  Age: 58 Year
  Sex: Female

DRUGS (1)
  1. ENBREL [Suspect]
     Active Substance: ETANERCEPT
     Indication: Rheumatoid arthritis
     Dosage: FREQUENCY : WEEKLY;?
     Route: 058
     Dates: start: 202411, end: 20241206

REACTIONS (5)
  - Middle insomnia [None]
  - Pain [None]
  - Rash [None]
  - Vomiting [None]
  - Therapy cessation [None]

NARRATIVE: CASE EVENT DATE: 20241207
